FAERS Safety Report 10586729 (Version 1)
Quarter: 2014Q4

REPORT INFORMATION
  Report Type: Spontaneous
  Country: US (occurrence: None)
  Receive Date: 20141114
  Receipt Date: 20141114
  Transmission Date: 20150529
  Serious: Yes (Other)
  Sender: FDA-Public Use
  Company Number: None

PATIENT
  Age: 78 Year
  Sex: Female

DRUGS (1)
  1. DULOXETINE [Suspect]
     Active Substance: DULOXETINE
     Indication: NEUROPATHY PERIPHERAL
     Dosage: 1 CAPSULE, QD, ORAL
     Route: 048

REACTIONS (7)
  - Asthenia [None]
  - Vertigo [None]
  - Visual impairment [None]
  - Confusional state [None]
  - Nausea [None]
  - Diplopia [None]
  - Feeling abnormal [None]

NARRATIVE: CASE EVENT DATE: 20141109
